FAERS Safety Report 6043052-8 (Version None)
Quarter: 2009Q1

REPORT INFORMATION
  Report Type: 
  Country: None (occurrence: None)
  Receive Date: 20090119
  Receipt Date: 20081224
  Transmission Date: 20090719
  Serious: Yes (Hospitalization)
  Sender: FDA-Public Use
  Company Number: RU-PFIZER INC-2008010675

PATIENT

DRUGS (13)
  1. SUNITINIB MALATE [Suspect]
     Route: 048
     Dates: start: 20070109, end: 20070903
  2. SUNITINIB MALATE [Suspect]
     Route: 048
     Dates: start: 20071001
  3. ROFERON-A [Suspect]
     Indication: RENAL CELL CARCINOMA
     Dosage: 3 MLN IU
     Route: 058
     Dates: start: 20050420, end: 20050425
  4. ROFERON-A [Suspect]
     Dosage: 6 MLN IU
     Route: 058
     Dates: start: 20050427, end: 20050502
  5. ROFERON-A [Suspect]
     Dosage: 9  MLN IU
     Route: 058
     Dates: start: 20050509, end: 20061125
  6. INTERFERON ALFA [Suspect]
  7. INDAPAMIDE [Concomitant]
     Route: 048
     Dates: start: 20050726
  8. ACETYLSALICYLIC ACID SRT [Concomitant]
     Route: 048
     Dates: start: 20061021
  9. DIOSMIN/HESPERIDIN [Concomitant]
     Route: 048
     Dates: start: 20071123
  10. DILTIAZEM [Concomitant]
     Route: 048
     Dates: start: 20070601
  11. FOSINOPRIL SODIUM [Concomitant]
     Route: 048
     Dates: start: 20070601
  12. HUMULIN N [Concomitant]
     Route: 058
     Dates: start: 20060222
  13. HUMULIN R [Concomitant]
     Route: 058
     Dates: start: 20060413

REACTIONS (1)
  - DIABETIC NEUROPATHY [None]
